FAERS Safety Report 9468432 (Version 3)
Quarter: 2013Q4

REPORT INFORMATION
  Report Type: Spontaneous
  Country: US (occurrence: US)
  Receive Date: 20130821
  Receipt Date: 20131028
  Transmission Date: 20140711
  Serious: Yes (Other)
  Sender: FDA-Public Use
  Company Number: US-PFIZER INC-2013238187

PATIENT
  Age: 75 Year
  Sex: Male
  Weight: 91.61 kg

DRUGS (8)
  1. TOVIAZ [Suspect]
     Indication: HYPERTONIC BLADDER
     Dosage: 8 MG, 1X/DAY
     Dates: start: 201307, end: 201308
  2. TOVIAZ [Interacting]
     Dosage: 4 MG, 1X/DAY
     Dates: start: 201308
  3. TOVIAZ [Interacting]
     Dosage: 8 MG, 1X/DAY
     Route: 048
     Dates: start: 201309, end: 201309
  4. TOVIAZ [Interacting]
     Dosage: 4 MG, 1X/DAY
     Route: 048
     Dates: start: 201309
  5. VIAGRA [Interacting]
     Indication: ERECTILE DYSFUNCTION
     Dosage: 50 MG, AS NEEDED
     Dates: start: 1993
  6. AMLODIPINE [Concomitant]
     Indication: BLOOD CHOLESTEROL INCREASED
     Dosage: 5 MG, 1X/DAY
  7. TRILIPIX [Concomitant]
     Indication: BLOOD CHOLESTEROL INCREASED
     Dosage: UNK
  8. VIAGRA [Concomitant]
     Indication: ERECTILE DYSFUNCTION
     Dosage: UNK, AS NEEDED
     Route: 048

REACTIONS (7)
  - Drug interaction [Unknown]
  - Bladder obstruction [Unknown]
  - Drug intolerance [Unknown]
  - Libido disorder [Unknown]
  - Drug ineffective [Unknown]
  - Ejaculation disorder [Recovered/Resolved]
  - Blood testosterone decreased [Unknown]
